FAERS Safety Report 6329009-8 (Version None)
Quarter: 2009Q3

REPORT INFORMATION
  Report Type: 
  Country: None (occurrence: None)
  Receive Date: 20090824
  Receipt Date: 20090824
  Transmission Date: 20100115
  Serious: Yes (Other)
  Sender: FDA-Public Use
  Company Number: None

PATIENT
  Age: 52 Year
  Sex: Female
  Weight: 54.4316 kg

DRUGS (2)
  1. CLINDAMYCIN HCL [Suspect]
     Indication: POST PROCEDURAL INFECTION
     Dosage: 300 MG CA 3 TIMES A DAY PO, DAYS
     Route: 048
     Dates: start: 20090808, end: 20090813
  2. CLINDAMYCIN HCL [Suspect]
     Indication: STAPHYLOCOCCAL INFECTION
     Dosage: 300 MG CA 3 TIMES A DAY PO, DAYS
     Route: 048
     Dates: start: 20090808, end: 20090813

REACTIONS (10)
  - CANDIDIASIS [None]
  - GASTROOESOPHAGEAL REFLUX DISEASE [None]
  - IMMUNE SYSTEM DISORDER [None]
  - MALAISE [None]
  - MOUTH INJURY [None]
  - OESOPHAGEAL INJURY [None]
  - PHARYNGEAL INJURY [None]
  - PHARYNGITIS [None]
  - STOMATITIS [None]
  - THROAT TIGHTNESS [None]
